FAERS Safety Report 9674281 (Version 1)
Quarter: 2013Q4

REPORT INFORMATION
  Report Type: Spontaneous
  Country: US (occurrence: US)
  Receive Date: 20131107
  Receipt Date: 20131107
  Transmission Date: 20140711
  Serious: Yes (Hospitalization)
  Sender: FDA-Public Use
  Company Number: US-009507513-1311USA000716

PATIENT
  Sex: 0

DRUGS (5)
  1. SINGULAIR [Suspect]
     Indication: FIBRINOUS BRONCHITIS
     Dosage: 6 MO-5 YRS: 4 MG/DAY; 6- 14 YRS: 5 MG/DAY; OVER OR EQUAL TO 15YRS: 10 MG/DAY
     Route: 048
  2. LEVALBUTEROL [Concomitant]
     Indication: FIBRINOUS BRONCHITIS
     Dosage: 0.63- 1.25 MG EVERY 4-6 HRS PRN
     Route: 055
  3. SODIUM CHLORIDE [Concomitant]
     Indication: FIBRINOUS BRONCHITIS
     Dosage: 4 ML TWICE/DAY
     Route: 055
  4. SODIUM CHLORIDE [Concomitant]
     Indication: FIBRINOUS BRONCHITIS
     Dosage: 4 ML TWICE/DAY
  5. DORNASE ALFA [Concomitant]
     Indication: FIBRINOUS BRONCHITIS
     Dosage: 2.5 MG 1-2 TIMES/DAY
     Route: 055

REACTIONS (3)
  - Fibrinous bronchitis [Unknown]
  - Drug ineffective [Unknown]
  - Off label use [Unknown]
